FAERS Safety Report 5773025-1 (Version None)
Quarter: 2008Q2

REPORT INFORMATION
  Report Type: 
  Country: None (occurrence: None)
  Receive Date: 20080611
  Receipt Date: 20080603
  Transmission Date: 20081010
  Serious: Yes (Hospitalization)
  Sender: FDA-Public Use
  Company Number: 2008BI012038

PATIENT
  Age: 45 Year
  Sex: Male

DRUGS (1)
  1. TYSABRI [Suspect]
     Indication: MULTIPLE SCLEROSIS
     Dosage: 300 MG; QM; IV
     Route: 042
     Dates: start: 20061221, end: 20070809

REACTIONS (6)
  - DISEASE PROGRESSION [None]
  - FALL [None]
  - GAIT DISTURBANCE [None]
  - MALAISE [None]
  - MOVEMENT DISORDER [None]
  - MULTIPLE SCLEROSIS [None]
